FAERS Safety Report 6018274-2 (Version None)
Quarter: 2008Q4

REPORT INFORMATION
  Report Type: 
  Country: None (occurrence: None)
  Receive Date: 20081223
  Receipt Date: 20081217
  Transmission Date: 20090506
  Serious: Yes (Hospitalization, Other)
  Sender: FDA-Public Use
  Company Number: PHHY2008FR32663

PATIENT
  Age: 45 Year
  Sex: Female

DRUGS (3)
  1. TEGRETOL [Suspect]
     Dosage: 400 MG, QID
     Dates: start: 20070101
  2. URBANYL [Concomitant]
     Dosage: 10 MG, TID
     Dates: start: 20070101
  3. TOPIRAMATE [Concomitant]
     Dosage: 200 MG, QD
     Dates: start: 20070101

REACTIONS (10)
  - CEREBELLAR SYNDROME [None]
  - DRUG LEVEL ABOVE THERAPEUTIC [None]
  - HYPONATRAEMIA [None]
  - NAUSEA [None]
  - NYSTAGMUS [None]
  - PSYCHOMOTOR RETARDATION [None]
  - VERTIGO POSITIONAL [None]
  - VISION BLURRED [None]
  - VOMITING [None]
  - WEIGHT DECREASED [None]
